FAERS Safety Report 8100783 (Version 4)
Quarter: 2012Q4

REPORT INFORMATION
  Report Type: 
  Country: US (occurrence: US)
  Receive Date: 20110822
  Receipt Date: 20121205
  Transmission Date: 20130627
  Serious: Yes (Hospitalization)
  Sender: FDA-Public Use
  Company Number: US-MPIJNJ-2011-03590

PATIENT
  Age: 78 Year
  Sex: Male
  Weight: 91.34 kg

DRUGS (1)
  1. VELCADE [Suspect]
     Indication: MULTIPLE MYELOMA
     Dosage: 2.6 mg, Cyclic
     Route: 042
     Dates: start: 20110223, end: 20110302

REACTIONS (1)
  - Urosepsis [Recovered/Resolved with Sequelae]
